FAERS Safety Report 8595332 (Version 4)
Quarter: 2019Q2

REPORT INFORMATION
  Report Type: Spontaneous
  Country: DE (occurrence: DE)
  Receive Date: 20120604
  Receipt Date: 20190503
  Transmission Date: 20190711
  Serious: Yes (Hospitalization, Other)
  Sender: FDA-Public Use
  Company Number: DE-ELI_LILLY_AND_COMPANY-DE201205008048

PATIENT
  Age: 51 Year
  Sex: Female

DRUGS (7)
  1. OLANZAPINE. [Suspect]
     Active Substance: OLANZAPINE
     Indication: SCHIZOPHRENIA
     Dosage: 10 MG, QD
  2. LORAZEPAM. [Suspect]
     Active Substance: LORAZEPAM
     Indication: PRODUCT USED FOR UNKNOWN INDICATION
     Dosage: 5 MG, UNK
     Route: 065
  3. AMISULPRIDE [Concomitant]
     Active Substance: AMISULPRIDE
     Indication: PRODUCT USED FOR UNKNOWN INDICATION
  4. OLANZAPINE. [Suspect]
     Active Substance: OLANZAPINE
     Dosage: 20 MG, QD
  5. L-THYROXINE [LEVOTHYROXINE] [Suspect]
     Active Substance: LEVOTHYROXINE
     Indication: PRODUCT USED FOR UNKNOWN INDICATION
     Dosage: 25 UG, QD
     Route: 065
  6. OLANZAPINE. [Suspect]
     Active Substance: OLANZAPINE
     Dosage: 30 MG, SINGLE
  7. FLUPHENAZINE [Concomitant]
     Active Substance: FLUPHENAZINE

REACTIONS (10)
  - Condition aggravated [Unknown]
  - Hypophagia [Unknown]
  - Hypothermia [Unknown]
  - Catatonia [Unknown]
  - Blood creatinine increased [Unknown]
  - Protein total abnormal [Unknown]
  - Prescribed overdose [Unknown]
  - Psychotic disorder [Unknown]
  - Body mass index decreased [Unknown]
  - Hypothyroidism [Unknown]
